FAERS Safety Report 25094690 (Version 1)
Quarter: 2025Q1

REPORT INFORMATION
  Report Type: Spontaneous
  Country: JP (occurrence: JP)
  Receive Date: 20250319
  Receipt Date: 20250319
  Transmission Date: 20250408
  Serious: Yes (Death)
  Sender: MERCK SHARP & DOHME LLC
  Company Number: JP-009507513-2263498

PATIENT
  Age: 9 Decade
  Sex: Male

DRUGS (2)
  1. STROMECTOL [Suspect]
     Active Substance: IVERMECTIN
     Indication: Acarodermatitis
     Route: 048
  2. EURAX [Suspect]
     Active Substance: CROTAMITON
     Indication: Acarodermatitis
     Route: 061

REACTIONS (1)
  - Bronchopulmonary aspergillosis [Fatal]
